FAERS Safety Report 13704268 (Version 1)
Quarter: 2017Q2

REPORT INFORMATION
  Report Type: Report from Study
  Country: None (occurrence: US)
  Receive Date: 20170630
  Receipt Date: 20170630
  Transmission Date: 20170830
  Serious: Yes (Other)
  Sender: FDA-Public Use
  Company Number: US-ABBVIE-17K-163-1956750-00

PATIENT
  Sex: Female

DRUGS (2)
  1. HUMIRA [Suspect]
     Active Substance: ADALIMUMAB
     Indication: PSORIATIC ARTHROPATHY
  2. HUMIRA [Suspect]
     Active Substance: ADALIMUMAB
     Indication: RHEUMATOID ARTHRITIS
     Route: 058
     Dates: end: 201704

REACTIONS (7)
  - Rheumatoid arthritis [Not Recovered/Not Resolved]
  - Procedural pain [Unknown]
  - Suicidal ideation [Unknown]
  - Joint range of motion decreased [Unknown]
  - Stomatitis [Unknown]
  - Ligament pain [Unknown]
  - Depressed mood [Unknown]
